FAERS Safety Report 15464412 (Version 3)
Quarter: 2019Q1

REPORT INFORMATION
  Report Type: Report from Study
  Country: US (occurrence: US)
  Receive Date: 20181004
  Receipt Date: 20190102
  Transmission Date: 20190417
  Serious: Yes (Other)
  Sender: FDA-Public Use
  Company Number: US-PUMA BIOTECHNOLOGY, LTD.-2018US008743

PATIENT

DRUGS (1)
  1. NERLYNX [Suspect]
     Active Substance: NERATINIB
     Indication: BREAST CANCER
     Dosage: 240 MG, DAILY
     Route: 048
     Dates: start: 20180823

REACTIONS (10)
  - Abdominal discomfort [Unknown]
  - Fatigue [Recovering/Resolving]
  - Cough [Unknown]
  - Diarrhoea [Recovering/Resolving]
  - Blood iron decreased [Unknown]
  - Flatulence [Unknown]
  - Nausea [Recovering/Resolving]
  - Neuropathy peripheral [Unknown]
  - Abdominal distension [Unknown]
  - Product dose omission [Unknown]

NARRATIVE: CASE EVENT DATE: 2018
